FAERS Safety Report 7137723-X (Version None)
Quarter: 2010Q4

REPORT INFORMATION
  Report Type: 
  Country: None (occurrence: None)
  Receive Date: 20101206
  Receipt Date: 20101123
  Transmission Date: 20110411
  Serious: Yes (Other)
  Sender: FDA-Public Use
  Company Number: PHHY2010FR80432

PATIENT
  Sex: Female

DRUGS (4)
  1. ZOMETA [Suspect]
     Indication: METASTASES TO BONE
     Dosage: 4 MG, QMO
     Dates: start: 20100401, end: 20101021
  2. CHEMOTHERAPEUTICS,OTHER [Concomitant]
     Dosage: UNK
  3. HORMONES NOS [Concomitant]
     Dosage: UNK
  4. PREVISCAN [Concomitant]
     Dosage: 20 MG, UNK
     Route: 048

REACTIONS (4)
  - BREATH ODOUR [None]
  - OSTEONECROSIS OF JAW [None]
  - PURULENT DISCHARGE [None]
  - STOMATITIS [None]
